FAERS Safety Report 7232001-2 (Version None)
Quarter: 2011Q1

REPORT INFORMATION
  Report Type: 
  Country: None (occurrence: None)
  Receive Date: 20110118
  Receipt Date: 20110112
  Transmission Date: 20110831
  Serious: Yes (Congenital Anomaly)
  Sender: FDA-Public Use
  Company Number: DE-MERCK-1009DEU00132B1

PATIENT
  Age: 1 Day
  Sex: Male
  Weight: 2 kg

DRUGS (6)
  1. ABACAVIR SULFATE AND LAMIVUDINE AND ZIDOVUDINE [Suspect]
     Indication: HIV INFECTION
     Route: 064
     Dates: start: 20081129
  2. DARUNAVIR [Suspect]
     Indication: HIV INFECTION
     Route: 064
     Dates: start: 20081129
  3. RITONAVIR [Suspect]
     Indication: HIV INFECTION
     Route: 064
     Dates: start: 20081129
  4. ABACAVIR SULFATE AND LAMIVUDINE AND ZIDOVUDINE [Suspect]
     Route: 064
  5. ISENTRESS [Suspect]
     Indication: HIV INFECTION
     Route: 064
     Dates: start: 20081129
  6. TENOFOVIR DISOPROXIL FUMARATE [Suspect]
     Indication: HIV INFECTION
     Route: 064
     Dates: start: 20081129

REACTIONS (6)
  - DRUG EXPOSURE DURING PREGNANCY [None]
  - PREMATURE BABY [None]
  - OESOPHAGEAL ATRESIA [None]
  - SPINE MALFORMATION [None]
  - HEMIVERTEBRA [None]
  - SMALL FOR DATES BABY [None]
